FAERS Safety Report 10229405 (Version 1)
Quarter: 2014Q2

REPORT INFORMATION
  Report Type: Spontaneous
  Country: US (occurrence: None)
  Receive Date: 20140609
  Receipt Date: 20140609
  Transmission Date: 20141212
  Serious: Yes (Hospitalization)
  Sender: FDA-Public Use
  Company Number: SYM-2014-21666

PATIENT
  Age: 41 Year
  Sex: Female

DRUGS (6)
  1. XENAZINE (TETRABENAZINE) (12.5 MILLIGRAM, TABLET) (TETRABENAZINE) [Suspect]
     Indication: HUNTINGTON^S DISEASE
     Route: 048
     Dates: start: 201405
  2. TIZANIDINE HYDROCHLORIDE (TIZANIDINE HYDROCHLORIDE) [Concomitant]
  3. ALPRAZOLAM (ALPRAZOLAM) [Concomitant]
  4. METOPROLOL (METOPROLOL) [Concomitant]
  5. NEXIUM (ESOMEPRAZOLE MAGNESIUM) (ESOMEPRAZOLE MAGNESIUM) [Concomitant]
  6. OLANZAPINE (OLANZAPINE) [Concomitant]

REACTIONS (1)
  - Chest pain [None]
